FAERS Safety Report 19824523 (Version 8)
Quarter: 2024Q2

REPORT INFORMATION
  Report Type: Report from Study
  Country: CA (occurrence: CA)
  Receive Date: 20210913
  Receipt Date: 20240425
  Transmission Date: 20240716
  Serious: Yes (Other)
  Sender: FDA-Public Use
  Company Number: CA-BIOGEN-2021BI01047277

PATIENT
  Age: 49 Year
  Sex: Male

DRUGS (6)
  1. TYSABRI [Suspect]
     Active Substance: NATALIZUMAB
     Indication: Multiple sclerosis
     Route: 050
     Dates: start: 20081201, end: 20171102
  2. TYSABRI [Suspect]
     Active Substance: NATALIZUMAB
     Route: 050
     Dates: start: 20081201, end: 20171102
  3. TYSABRI [Suspect]
     Active Substance: NATALIZUMAB
     Dosage: INFUSED OVER 1 HOUR
     Route: 050
     Dates: start: 20210921
  4. TYSABRI [Suspect]
     Active Substance: NATALIZUMAB
     Route: 050
     Dates: start: 20210922
  5. TYSABRI [Suspect]
     Active Substance: NATALIZUMAB
     Route: 050
     Dates: start: 20081201, end: 20171102
  6. TYSABRI [Suspect]
     Active Substance: NATALIZUMAB
     Route: 050
     Dates: start: 20210922, end: 20230627

REACTIONS (6)
  - Neuroendocrine carcinoma of the skin [Unknown]
  - Pancreatic carcinoma [Unknown]
  - Prescribed underdose [Recovered/Resolved]
  - Secondary progressive multiple sclerosis [Unknown]
  - Asthenia [Unknown]
  - Underweight [Unknown]

NARRATIVE: CASE EVENT DATE: 20081201
